FAERS Safety Report 12173083 (Version 1)
Quarter: 2016Q1

REPORT INFORMATION
  Report Type: Spontaneous
  Country: CH (occurrence: CH)
  Receive Date: 20160311
  Receipt Date: 20160311
  Transmission Date: 20160526
  Serious: Yes (Hospitalization, Disabling)
  Sender: FDA-Public Use
  Company Number: CH-SA-2016SA044444

PATIENT
  Age: 63 Year
  Sex: Female

DRUGS (9)
  1. SEROQUEL [Suspect]
     Active Substance: QUETIAPINE FUMARATE
     Route: 048
  2. PANTOZOL [Concomitant]
     Active Substance: PANTOPRAZOLE SODIUM
     Route: 048
     Dates: start: 20150615, end: 20150630
  3. TEMESTA [Suspect]
     Active Substance: LORAZEPAM
     Route: 048
     Dates: start: 20150615, end: 20150630
  4. REMINYL [Concomitant]
     Active Substance: GALANTAMINE
     Route: 048
     Dates: start: 20150615, end: 20150630
  5. SEROQUEL [Suspect]
     Active Substance: QUETIAPINE FUMARATE
     Route: 048
     Dates: start: 20150615, end: 20150719
  6. STILNOX [Suspect]
     Active Substance: ZOLPIDEM TARTRATE
     Route: 048
     Dates: start: 20150615, end: 20150630
  7. LYRICA [Suspect]
     Active Substance: PREGABALIN
     Route: 048
     Dates: start: 20150626, end: 20150630
  8. XANAX [Suspect]
     Active Substance: ALPRAZOLAM
     Route: 048
     Dates: start: 20150615, end: 20150630
  9. ALENDRON [Suspect]
     Active Substance: ALENDRONATE SODIUM
     Route: 048
     Dates: start: 20150615, end: 20150630

REACTIONS (1)
  - Cerebrovascular accident [Not Recovered/Not Resolved]

NARRATIVE: CASE EVENT DATE: 20150630
